FAERS Safety Report 13535381 (Version 1)
Quarter: 2017Q2

REPORT INFORMATION
  Report Type: Spontaneous
  Country: GR (occurrence: GR)
  Receive Date: 20170511
  Receipt Date: 20170511
  Transmission Date: 20170830
  Serious: Yes (Hospitalization)
  Sender: FDA-Public Use
  Company Number: GR-PFIZER INC-2017199782

PATIENT
  Age: 75 Year
  Sex: Female

DRUGS (1)
  1. AROMASIN [Suspect]
     Active Substance: EXEMESTANE
     Indication: BREAST CANCER
     Dosage: UNK
     Dates: start: 201612

REACTIONS (6)
  - Pruritus [Unknown]
  - Mental disorder [Unknown]
  - Anxiety [Unknown]
  - Chest discomfort [Unknown]
  - Depression [Unknown]
  - Pneumonia [Unknown]
